FAERS Safety Report 24741133 (Version 2)
Quarter: 2025Q1

REPORT INFORMATION
  Report Type: Spontaneous
  Country: JP (occurrence: JP)
  Receive Date: 20241217
  Receipt Date: 20250325
  Transmission Date: 20250408
  Serious: Yes (Other)
  Sender: GLAXOSMITHKLINE
  Company Number: JP-GSKNCCC-Case-02139129_AE-91404

PATIENT

DRUGS (1)
  1. TRELEGY ELLIPTA [Suspect]
     Active Substance: FLUTICASONE FUROATE\UMECLIDINIUM BROMIDE\VILANTEROL TRIFENATATE
     Indication: Asthma

REACTIONS (4)
  - Pneumonia [Recovered/Resolved]
  - Pertussis [Recovered/Resolved]
  - Pyrexia [Unknown]
  - Cough [Unknown]
